FAERS Safety Report 9885599 (Version 1)
Quarter: 2014Q1

REPORT INFORMATION
  Report Type: Spontaneous
  Country: US (occurrence: US)
  Receive Date: 20140210
  Receipt Date: 20140210
  Transmission Date: 20141002
  Serious: No
  Sender: FDA-Public Use
  Company Number: US-GILEAD-2012-0050893

PATIENT
  Age: 42 Year
  Sex: Male

DRUGS (1)
  1. VIREAD [Suspect]
     Indication: PRODUCT USED FOR UNKNOWN INDICATION
     Dosage: UNK
     Dates: start: 20120124

REACTIONS (1)
  - Myalgia [Recovering/Resolving]
